FAERS Safety Report 7322477-4 (Version None)
Quarter: 2011Q1

REPORT INFORMATION
  Report Type: 
  Country: None (occurrence: None)
  Receive Date: 20110125
  Receipt Date: 20101130
  Transmission Date: 20110831
  Serious: No
  Sender: FDA-Public Use
  Company Number: US-004289

PATIENT
  Sex: Male
  Weight: 90.7194 kg

DRUGS (12)
  1. ASPIRIN [Concomitant]
  2. ATENOLOL [Concomitant]
  3. PLAVIX [Concomitant]
  4. LOSARTAN POTASSIUM [Concomitant]
  5. FIRMAGON [Suspect]
     Indication: PROSTATE CANCER
     Dosage: SEE IMAGE
     Route: 058
     Dates: start: 20100204, end: 20100204
  6. FIRMAGON [Suspect]
     Indication: PROSTATE CANCER
     Dosage: SEE IMAGE
     Route: 058
     Dates: start: 20100301, end: 20100301
  7. FIRMAGON [Suspect]
     Indication: PROSTATE CANCER
     Dosage: SEE IMAGE
     Route: 058
     Dates: start: 20100401, end: 20100401
  8. FIRMAGON [Suspect]
     Indication: PROSTATE CANCER
     Dosage: SEE IMAGE
     Route: 058
     Dates: start: 20100501, end: 20100501
  9. FIRMAGON [Suspect]
     Indication: PROSTATE CANCER
     Dosage: SEE IMAGE
     Route: 058
     Dates: start: 20101025
  10. ZOCOR [Concomitant]
  11. FLOMAX /01280302/ [Concomitant]
  12. RAPAFLO [Concomitant]

REACTIONS (1)
  - PROSTATIC SPECIFIC ANTIGEN INCREASED [None]
